FAERS Safety Report 10061980 (Version 1)
Quarter: 2014Q2

REPORT INFORMATION
  Report Type: Spontaneous
  Country: US (occurrence: US)
  Receive Date: 20140407
  Receipt Date: 20140407
  Transmission Date: 20141212
  Serious: Yes (Other)
  Sender: FDA-Public Use
  Company Number: US-SA-2014SA041573

PATIENT
  Sex: Female

DRUGS (4)
  1. NASACORT ALLERGY [Suspect]
     Indication: PRODUCT USED FOR UNKNOWN INDICATION
     Route: 065
     Dates: start: 20140328
  2. ZYRTEC [Concomitant]
  3. SINGULAIR [Concomitant]
  4. CLARITIN [Concomitant]
     Route: 065

REACTIONS (4)
  - Adverse event [Unknown]
  - Nasal congestion [Unknown]
  - Pain [Unknown]
  - Extra dose administered [Unknown]
